FAERS Safety Report 16584906 (Version 2)
Quarter: 2019Q3

REPORT INFORMATION
  Report Type: Spontaneous
  Country: US (occurrence: US)
  Receive Date: 20190717
  Receipt Date: 20190731
  Transmission Date: 20191004
  Serious: Yes (Hospitalization, Other)
  Sender: FDA-Public Use
  Company Number: US-JNJFOC-20190706153

PATIENT
  Age: 61 Year
  Sex: Female

DRUGS (4)
  1. SULFAMETHOXAZOLE AND TRIMETHOPRIM [Suspect]
     Active Substance: SULFAMETHOXAZOLE\TRIMETHOPRIM
     Indication: BRONCHOPULMONARY ASPERGILLOSIS
     Route: 065
  2. PREDNISONE. [Concomitant]
     Active Substance: PREDNISONE
     Indication: BRONCHOPULMONARY ASPERGILLOSIS
  3. ITRACONAZOLE. [Suspect]
     Active Substance: ITRACONAZOLE
     Indication: BRONCHOPULMONARY ASPERGILLOSIS
     Route: 065
  4. PREDNISONE. [Concomitant]
     Active Substance: PREDNISONE
     Indication: CHOLESTATIC LIVER INJURY
     Route: 065

REACTIONS (3)
  - Cholestatic liver injury [Recovered/Resolved]
  - Hypercholesterolaemia [Recovering/Resolving]
  - Pseudohyponatraemia [Recovered/Resolved]
